FAERS Safety Report 19133811 (Version 1)
Quarter: 2021Q2

REPORT INFORMATION
  Report Type: Spontaneous
  Country: CN (occurrence: CN)
  Receive Date: 20210414
  Receipt Date: 20210414
  Transmission Date: 20210717
  Serious: Yes (Hospitalization, Other)
  Sender: FDA-Public Use
  Company Number: CN-BAYER-2021-120610

PATIENT
  Age: 81 Year
  Sex: Male
  Weight: 68 kg

DRUGS (1)
  1. AVELOX [Suspect]
     Active Substance: MOXIFLOXACIN HYDROCHLORIDE
     Indication: PNEUMONIA BACTERIAL
     Dosage: 0.4 G, QD
     Route: 048
     Dates: start: 20210312, end: 20210321

REACTIONS (7)
  - Neurodegenerative disorder [None]
  - Agitation [Recovering/Resolving]
  - Insomnia [Recovering/Resolving]
  - Delirium [Recovering/Resolving]
  - Speech disorder [Recovering/Resolving]
  - Mental disorder [Recovering/Resolving]
  - Confusional state [Recovering/Resolving]

NARRATIVE: CASE EVENT DATE: 20210319
